FAERS Safety Report 4303680-4 (Version None)
Quarter: 2004Q1

REPORT INFORMATION
  Report Type: 
  Country: None (occurrence: None)
  Receive Date: 20040126
  Receipt Date: 20030924
  Transmission Date: 20041129
  Serious: No
  Sender: FDA-Public Use
  Company Number: USA030948642

PATIENT
  Age: 12 Year
  Weight: 36 kg

DRUGS (1)
  1. STRATTERA [Suspect]
     Dosage: 40 MG/DAY

REACTIONS (1)
  - ACCIDENTAL OVERDOSE [None]
